FAERS Safety Report 5853798-X (Version None)
Quarter: 2008Q3

REPORT INFORMATION
  Report Type: 
  Country: None (occurrence: None)
  Receive Date: 20080822
  Receipt Date: 20080307
  Transmission Date: 20090109
  Serious: No
  Sender: FDA-Public Use
  Company Number: US-BAYER-200816972NA

PATIENT
  Age: 50 Year
  Sex: Female
  Weight: 55 kg

DRUGS (1)
  1. CLIMARA PRO [Suspect]
     Indication: MENOPAUSAL SYMPTOMS
     Route: 062

REACTIONS (8)
  - FATIGUE [None]
  - GENITAL HAEMORRHAGE [None]
  - HEADACHE [None]
  - HOT FLUSH [None]
  - MENOPAUSAL SYMPTOMS [None]
  - NAUSEA [None]
  - NIGHT SWEATS [None]
  - VAGINAL HAEMORRHAGE [None]
